FAERS Safety Report 23339591 (Version 2)
Quarter: 2024Q1

REPORT INFORMATION
  Report Type: Spontaneous
  Country: None (occurrence: US)
  Receive Date: 20231226
  Receipt Date: 20240109
  Transmission Date: 20240410
  Serious: No
  Sender: FDA-Public Use
  Company Number: US-Nuvo Pharmaceuticals Inc-2149750

PATIENT
  Age: 27 Year
  Sex: Male
  Weight: 72.727 kg

DRUGS (3)
  1. DEXTROAMPHETAMINE SULFATE [Suspect]
     Active Substance: DEXTROAMPHETAMINE SULFATE
     Indication: Attention deficit hyperactivity disorder
     Route: 048
     Dates: start: 2023, end: 20231129
  2. DULOXETINE [Concomitant]
     Active Substance: DULOXETINE
     Route: 065
  3. TRIAZOLAM [Concomitant]
     Active Substance: TRIAZOLAM
     Route: 065

REACTIONS (2)
  - Drug ineffective [Unknown]
  - Product substitution issue [Unknown]

NARRATIVE: CASE EVENT DATE: 20230815
